FAERS Safety Report 9348227 (Version 1)
Quarter: 2013Q2

REPORT INFORMATION
  Report Type: Spontaneous
  Country: US (occurrence: US)
  Receive Date: 20130614
  Receipt Date: 20130614
  Transmission Date: 20140414
  Serious: Yes (Hospitalization)
  Sender: FDA-Public Use
  Company Number: US-BAYER-2013-072129

PATIENT
  Age: 43 Year
  Sex: Female
  Weight: 102.5 kg

DRUGS (10)
  1. GIANVI [Suspect]
     Indication: MENORRHAGIA
  2. ALLEGRA-D [Concomitant]
     Dosage: 12 HOUR TABLET
     Dates: start: 20120305
  3. SINGULAIR [Concomitant]
     Dosage: 10 MG, UNK
     Dates: start: 20120305
  4. CITALOPRAM [Concomitant]
     Dosage: 20 MG, UNK
     Dates: start: 20120305
  5. CIPRO [Concomitant]
     Dosage: UNK
     Dates: start: 20120305
  6. IBUPROFEN [Concomitant]
     Dosage: 800 MG, UNK
     Dates: start: 20120119
  7. TRAMADOL [Concomitant]
     Dosage: 50 MG, UNK
     Dates: start: 20120109
  8. DICLOFENAC [Concomitant]
     Dosage: UNK
     Dates: start: 20120305
  9. VOLTAREN [Concomitant]
  10. YAZ [Suspect]

REACTIONS (2)
  - Pulmonary embolism [None]
  - Deep vein thrombosis [None]
